FAERS Safety Report 4306795-X (Version None)
Quarter: 2004Q1

REPORT INFORMATION
  Report Type: 
  Country: None (occurrence: None)
  Receive Date: 20040225
  Receipt Date: 20040206
  Transmission Date: 20041129
  Serious: Yes (Hospitalization)
  Sender: FDA-Public Use
  Company Number: WAES 0401USA02056

PATIENT
  Age: 78 Year
  Sex: Male

DRUGS (1)
  1. DECADRON [Suspect]

REACTIONS (3)
  - DEHYDRATION [None]
  - HYPERGLYCAEMIA [None]
  - SYNCOPE [None]
